FAERS Safety Report 6183206-3 (Version None)
Quarter: 2009Q2

REPORT INFORMATION
  Report Type: 
  Country: None (occurrence: None)
  Receive Date: 20090506
  Receipt Date: 20090421
  Transmission Date: 20091009
  Serious: Yes (Hospitalization)
  Sender: FDA-Public Use
  Company Number: 2009050014

PATIENT
  Age: 74 Year
  Sex: Female

DRUGS (11)
  1. TORSEMIDE [Suspect]
     Indication: HYPERTENSION
     Dosage: 10 MG (10 MG, 1 IN 1 D), ORAL
     Route: 048
     Dates: start: 20080601, end: 20090218
  2. IBUPROFEN [Concomitant]
  3. OMEPRAZOLE [Concomitant]
  4. ALPRAZOLAM [Concomitant]
  5. EUTIROX (LEVOTHYROXINE) [Concomitant]
  6. FOSITENS (FOSINOPRIL SODIUM) [Concomitant]
  7. INALADUO (FLUTICASONE PROPIONATE, SALMETEROL XINAFOATE) [Concomitant]
  8. PORTELOS (STRONTIUM RANELATE) [Concomitant]
  9. SINGULAIR [Concomitant]
  10. ZANIDIP (LERCANIDIPINE HCL) [Concomitant]
  11. IBERCAL (CALCIUM PIDOLATE) [Concomitant]

REACTIONS (4)
  - BLOOD POTASSIUM DECREASED [None]
  - HYPOCALCAEMIA [None]
  - PERIPHERAL SENSORY NEUROPATHY [None]
  - QUADRIPARESIS [None]
